FAERS Safety Report 9026732 (Version 3)
Quarter: 2013Q1

REPORT INFORMATION
  Report Type: Spontaneous
  Country: US (occurrence: None)
  Receive Date: 20130110
  Receipt Date: 20130312
  Transmission Date: 20140127
  Serious: Yes (Hospitalization)
  Sender: FDA-Public Use
  Company Number: 2012PROUSA02404

PATIENT
  Age: 71 Year
  Sex: Male
  Weight: 105.2 kg

DRUGS (9)
  1. PROVENGE [Suspect]
     Indication: PROSTATE CANCER METASTATIC
     Dosage: SINGLE
     Route: 042
     Dates: start: 20121115, end: 20121115
  2. CHONDROITIN SULFATE (CHONDROITIN SULFATE) [Concomitant]
  3. CALCIUM (CALCIUM) [Concomitant]
  4. GLUCOSAMINE (GLUCOSAMINE SULFATE) [Concomitant]
  5. FISH OIL (FISH OIL) [Concomitant]
  6. LUPRON (LEUPRORELIN ACETATE) [Concomitant]
  7. ZOFRAN (ONDANSETRON HYDROCHLORIDE) [Concomitant]
  8. LORTAB (HYDROCODONE BITARTRATE, PARACETAMOL) [Concomitant]
  9. CASODEX (BICALUTAMIDE) [Concomitant]

REACTIONS (7)
  - Cholecystitis acute [None]
  - Nausea [None]
  - Abdominal distension [None]
  - Hydrocholecystis [None]
  - Cholecystitis [None]
  - Gallbladder necrosis [None]
  - Post procedural complication [None]
